FAERS Safety Report 7669250-5 (Version None)
Quarter: 2011Q3

REPORT INFORMATION
  Report Type: 
  Country: None (occurrence: None)
  Receive Date: 20110808
  Receipt Date: 20110802
  Transmission Date: 20111222
  Serious: Yes (Hospitalization, Other)
  Sender: FDA-Public Use
  Company Number: PHEH2011US00786

PATIENT
  Sex: Female

DRUGS (2)
  1. ATENOLOL [Concomitant]
     Dosage: UNK UKN, UNK
  2. RECLAST [Suspect]
     Dosage: UNK UKN, UNK
     Route: 042

REACTIONS (4)
  - RENAL DISORDER [None]
  - DISCOMFORT [None]
  - PAIN [None]
  - BLOOD CALCIUM DECREASED [None]
